FAERS Safety Report 6957790-3 (Version None)
Quarter: 2010Q3

REPORT INFORMATION
  Report Type: 
  Country: None (occurrence: None)
  Receive Date: 20100830
  Receipt Date: 20100830
  Transmission Date: 20110219
  Serious: Yes (Other)
  Sender: FDA-Public Use
  Company Number: None

PATIENT
  Age: 77 Year
  Sex: Female
  Weight: 74.8435 kg

DRUGS (1)
  1. ARICEPT [Suspect]
     Indication: DEMENTIA ALZHEIMER'S TYPE
     Dosage: .25MG ONCE A DAY
     Dates: start: 20091201, end: 20100822

REACTIONS (4)
  - ABDOMINAL DISCOMFORT [None]
  - CRYING [None]
  - GAIT DISTURBANCE [None]
  - VERTIGO [None]
